FAERS Safety Report 9311199 (Version 1)
Quarter: 2013Q1

REPORT INFORMATION
  Report Type: Spontaneous
  Country: DE (occurrence: None)
  Receive Date: 20130227
  Receipt Date: 20130227
  Transmission Date: 20140127
  Serious: Yes (Death)
  Sender: FDA-Public Use
  Company Number: 2012033929

PATIENT
  Age: 72 Year
  Sex: Male

DRUGS (6)
  1. PRIVIGEN (IMMUNE GLOBULIN INTRAVENOUS (HUMAN) 10% LIQUID) [Suspect]
     Indication: CHRONIC LYMPHOCYTIC LEUKAEMIA
     Route: 042
     Dates: start: 20120924, end: 20120924
  2. PREDNISON (PREDNISONE) [Concomitant]
  3. GLUCOCORTICOIDS 9GLUCOCORTICOIDS) [Concomitant]
  4. ANTIMYCOBACTERIALS (ANTIMYCOBACTERIALS) [Concomitant]
  5. ANTIBIOTICS (ANTIBIOTICS) [Concomitant]
  6. ANTIVIRALS NOS (ANTIVIRALS NOS0 [Concomitant]

REACTIONS (2)
  - Neoplasm progression [None]
  - Infection [None]
